FAERS Safety Report 5367110-6 (Version None)
Quarter: 2007Q2

REPORT INFORMATION
  Report Type: 
  Country: None (occurrence: None)
  Receive Date: 20070622
  Receipt Date: 20060712
  Transmission Date: 20071010
  Serious: No
  Sender: FDA-Public Use
  Company Number: US-BRISTOL-MYERS SQUIBB COMPANY-13393368

PATIENT
  Age: 72 Year
  Sex: Female
  Weight: 56 kg

DRUGS (10)
  1. SINEMET CR [Suspect]
     Indication: PARKINSON'S DISEASE
     Route: 048
     Dates: start: 20060501, end: 20060528
  2. CARBIDOPA AND LEVODOPA [Suspect]
     Indication: PARKINSON'S DISEASE
  3. ASCORBIC ACID [Concomitant]
     Route: 048
  4. VITAMIN E [Concomitant]
     Route: 048
  5. VITAMIN CAP [Concomitant]
     Route: 048
  6. MAGNESIUM SULFATE [Concomitant]
     Route: 048
  7. ECHINACEA [Concomitant]
     Dosage: WRITTEN AS 3 BY MOUTH TWICE A DAY ONCE A WEEK
     Route: 048
  8. FISH OIL [Concomitant]
     Dosage: DOSAGE : 1 TEASPOON BY MOUTH TWICE A DAY.
     Route: 048
  9. ACTONEL [Concomitant]
     Route: 048
  10. MIRAPEX [Concomitant]
     Route: 048

REACTIONS (1)
  - DRUG INEFFECTIVE [None]
